FAERS Safety Report 14132569 (Version 3)
Quarter: 2017Q4

REPORT INFORMATION
  Report Type: Spontaneous
  Country: IT (occurrence: IT)
  Receive Date: 20171026
  Receipt Date: 20171110
  Transmission Date: 20180321
  Serious: Yes (Other)
  Sender: FDA-Public Use
  Company Number: IT-TEVA-818821ACC

PATIENT
  Age: 47 Year
  Sex: Female

DRUGS (2)
  1. HALDOL [Suspect]
     Active Substance: HALOPERIDOL
     Indication: INTENTIONAL SELF-INJURY
     Dates: start: 20170921, end: 20170921
  2. LORAZEPAM. [Suspect]
     Active Substance: LORAZEPAM
     Indication: INTENTIONAL SELF-INJURY
     Route: 048
     Dates: start: 20170921, end: 20170921

REACTIONS (5)
  - Overdose [Recovered/Resolved]
  - Asthenia [Recovered/Resolved]
  - Sopor [Recovered/Resolved]
  - Intentional self-injury [Recovered/Resolved]
  - Bradykinesia [Recovered/Resolved]

NARRATIVE: CASE EVENT DATE: 20170921
